FAERS Safety Report 9146591 (Version 3)
Quarter: 2013Q2

REPORT INFORMATION
  Report Type: Spontaneous
  Country: DE (occurrence: DE)
  Receive Date: 20130307
  Receipt Date: 20130624
  Transmission Date: 20140414
  Serious: Yes (Life-Threatening, Hospitalization, Other)
  Sender: FDA-Public Use
  Company Number: DE-JNJFOC-20130112503

PATIENT
  Age: 82 Year
  Sex: Female
  Weight: 82.09 kg

DRUGS (21)
  1. XARELTO [Suspect]
     Indication: THROMBOSIS PROPHYLAXIS
     Route: 048
     Dates: start: 20130114
  2. XARELTO [Suspect]
     Indication: ARTHROPATHY
     Route: 048
     Dates: start: 20130114
  3. ASS [Interacting]
     Indication: STENT PLACEMENT
     Route: 065
  4. ASS [Interacting]
     Indication: STENT PLACEMENT
     Route: 065
  5. ASS [Interacting]
     Indication: STENT PLACEMENT
     Route: 065
  6. ASS [Interacting]
     Indication: CORONARY ARTERY DISEASE
     Route: 065
  7. ASS [Interacting]
     Indication: CORONARY ARTERY DISEASE
     Route: 065
  8. ASS [Interacting]
     Indication: CORONARY ARTERY DISEASE
     Route: 065
  9. ASS [Interacting]
     Indication: CEREBROVASCULAR ACCIDENT
     Route: 065
  10. ASS [Interacting]
     Indication: CEREBROVASCULAR ACCIDENT
     Route: 065
  11. ASS [Interacting]
     Indication: CEREBROVASCULAR ACCIDENT
     Route: 065
  12. HYDROCHLOROTHIAZIDE [Suspect]
     Indication: CARDIAC FAILURE
     Route: 065
  13. ARCOXIA [Concomitant]
     Route: 065
  14. PANTOZOL [Concomitant]
     Route: 065
  15. TRAMAL [Concomitant]
     Route: 065
  16. METOPROLOL [Concomitant]
     Indication: CORONARY ARTERY DISEASE
     Route: 065
  17. METOPROLOL [Concomitant]
     Indication: CARDIAC FAILURE
     Route: 065
  18. LISINOPRIL [Concomitant]
     Indication: CARDIAC FAILURE
     Route: 065
  19. LISINOPRIL [Concomitant]
     Indication: CORONARY ARTERY DISEASE
     Route: 065
  20. REPAGLINIDE [Concomitant]
     Indication: TYPE 2 DIABETES MELLITUS
     Route: 065
  21. SIMVASTATIN [Concomitant]
     Indication: CARDIAC FAILURE
     Route: 065

REACTIONS (6)
  - Blood pressure diastolic decreased [Recovered/Resolved]
  - Lower gastrointestinal haemorrhage [Recovered/Resolved]
  - Gastrointestinal haemorrhage [Recovered/Resolved]
  - Hyperhidrosis [Recovered/Resolved]
  - Haemorrhagic anaemia [Recovered/Resolved]
  - Drug interaction [Unknown]
